FAERS Safety Report 9127352 (Version 1)
Quarter: 2013Q1

REPORT INFORMATION
  Report Type: Spontaneous
  Country: US (occurrence: US)
  Receive Date: 20130228
  Receipt Date: 20130228
  Transmission Date: 20140127
  Serious: No
  Sender: FDA-Public Use
  Company Number: US-GLAXOSMITHKLINE-A0970524A

PATIENT
  Age: 53 Year
  Sex: Female

DRUGS (6)
  1. LAMOTRIGINE [Suspect]
     Indication: PRODUCT USED FOR UNKNOWN INDICATION
     Dosage: 2.5TAB TWICE PER DAY
     Route: 048
     Dates: start: 20120320, end: 20120320
  2. LISINOPRIL [Concomitant]
  3. MAXZIDE [Concomitant]
  4. ASPIRIN [Concomitant]
  5. CELEXA [Concomitant]
  6. ENDOCET [Concomitant]

REACTIONS (5)
  - Drug dispensing error [Recovering/Resolving]
  - Nausea [Unknown]
  - Somnolence [Unknown]
  - Dysphagia [Unknown]
  - Pruritus generalised [Unknown]
